FAERS Safety Report 7296013-5 (Version None)
Quarter: 2011Q1

REPORT INFORMATION
  Report Type: 
  Country: None (occurrence: None)
  Receive Date: 20110204
  Receipt Date: 20110125
  Transmission Date: 20110831
  Serious: Yes (Life-Threatening, Hospitalization)
  Sender: FDA-Public Use
  Company Number: MSTR-NO-0908S-0152

PATIENT
  Age: 46 Year
  Sex: Female

DRUGS (2)
  1. METASTRON [Suspect]
     Indication: BONE PAIN
     Dosage: NR, SINGLE DOSE, IV
     Route: 042
     Dates: start: 20090217, end: 20090217
  2. METASTRON [Suspect]
     Indication: METASTATIC PAIN
     Dosage: NR, SINGLE DOSE, IV
     Route: 042
     Dates: start: 20090217, end: 20090217

REACTIONS (9)
  - HOT FLUSH [None]
  - BREAST CANCER FEMALE [None]
  - ANAEMIA [None]
  - PLATELET COUNT DECREASED [None]
  - INFUSION RELATED REACTION [None]
  - MALAISE [None]
  - NAUSEA [None]
  - NEOPLASM MALIGNANT [None]
  - WHITE BLOOD CELL COUNT DECREASED [None]
